FAERS Safety Report 5174531-3 (Version None)
Quarter: 2006Q4

REPORT INFORMATION
  Report Type: 
  Country: None (occurrence: None)
  Receive Date: 20061214
  Receipt Date: 20060725
  Transmission Date: 20070319
  Serious: No
  Sender: FDA-Public Use
  Company Number: US-AMGEN-KDC187801

PATIENT
  Sex: Female

DRUGS (2)
  1. ENBREL [Suspect]
     Indication: RHEUMATOID ARTHRITIS
     Route: 058
     Dates: start: 20060724
  2. METHOTREXATE [Concomitant]
     Route: 065
     Dates: start: 20060724

REACTIONS (3)
  - ABDOMINAL PAIN UPPER [None]
  - ORAL INTAKE REDUCED [None]
  - VOMITING [None]
